FAERS Safety Report 17229571 (Version 1)
Quarter: 2020Q1

REPORT INFORMATION
  Report Type: Spontaneous
  Country: US (occurrence: US)
  Receive Date: 20200103
  Receipt Date: 20200103
  Transmission Date: 20200409
  Serious: No
  Sender: FDA-Public Use
  Company Number: US-PFIZER INC-2019489727

PATIENT
  Age: 65 Year
  Sex: Male

DRUGS (2)
  1. IBRANCE [Suspect]
     Active Substance: PALBOCICLIB
     Indication: SQUAMOUS CELL CARCINOMA
     Dosage: 125 MG, UNK
  2. IBRANCE [Suspect]
     Active Substance: PALBOCICLIB
     Indication: CHEMOTHERAPY

REACTIONS (4)
  - Product use in unapproved indication [Unknown]
  - Iron deficiency anaemia [Unknown]
  - Off label use [Unknown]
  - Neoplasm progression [Unknown]
